FAERS Safety Report 7161303-3 (Version None)
Quarter: 2010Q4

REPORT INFORMATION
  Report Type: 
  Country: None (occurrence: None)
  Receive Date: 20101210
  Receipt Date: 20101210
  Transmission Date: 20110411
  Serious: No
  Sender: FDA-Public Use
  Company Number: None

PATIENT
  Age: 64 Year
  Sex: Male

DRUGS (2)
  1. NAPROXEN [Suspect]
     Dosage: 500 MG PRN PO
     Route: 048
     Dates: start: 20091006, end: 20100504
  2. LISINOPRIL AND HYDROCHLOROTHIAZIDE [Suspect]
     Dates: start: 20080507, end: 20100504

REACTIONS (4)
  - BENIGN PROSTATIC HYPERPLASIA [None]
  - DRUG INTERACTION [None]
  - HYPERKALAEMIA [None]
  - RENAL FAILURE ACUTE [None]
